FAERS Safety Report 16291266 (Version 1)
Quarter: 2019Q2

REPORT INFORMATION
  Report Type: Spontaneous
  Country: US (occurrence: US)
  Receive Date: 20190509
  Receipt Date: 20190509
  Transmission Date: 20190711
  Serious: Yes (Other)
  Sender: FDA-Public Use
  Company Number: US-PFIZER INC-2019194326

PATIENT
  Age: 79 Year
  Sex: Female
  Weight: 68 kg

DRUGS (1)
  1. PREMARIN [Suspect]
     Active Substance: ESTROGENS, CONJUGATED
     Indication: HORMONE LEVEL ABNORMAL
     Dosage: 1.25 MG, 1X/DAY

REACTIONS (6)
  - Cardiac disorder [Unknown]
  - Vaginal haemorrhage [Unknown]
  - Neck injury [Unknown]
  - Drug ineffective [Unknown]
  - Bladder neck obstruction [Unknown]
  - Back pain [Unknown]
